FAERS Safety Report 5975096-6 (Version None)
Quarter: 2008Q4

REPORT INFORMATION
  Report Type: 
  Country: None (occurrence: None)
  Receive Date: 20081128
  Receipt Date: 20081120
  Transmission Date: 20090506
  Serious: Yes (Hospitalization)
  Sender: FDA-Public Use
  Company Number: 036936

PATIENT
  Age: 59 Year
  Sex: Female

DRUGS (15)
  1. METHOTREXATE [Suspect]
     Indication: PSORIASIS
     Dosage: 2.5 MG
  2. CARVEDILOL [Concomitant]
  3. IBUPROFEN TABLETS [Concomitant]
  4. METFORMIN HCL [Concomitant]
  5. FUROSEMIDE [Concomitant]
  6. TICLOPIDINE HYDROCHLORIDE [Concomitant]
  7. FEXOFENADINE HCL [Concomitant]
  8. COLCHICINE (COLCHICINE) [Concomitant]
  9. OLMESARTAN (OLMESARTAN MEDOXOMIL) [Concomitant]
  10. AMLODIPINE [Concomitant]
  11. SPIRONOLACTONE [Concomitant]
  12. CETIRIZINE HCL [Concomitant]
  13. METOLAZONE [Concomitant]
  14. LISINOPRIL [Concomitant]
  15. DOCUSATE SODIUM (DOCUSATE SODIUM) [Concomitant]

REACTIONS (13)
  - BLOOD FOLATE DECREASED [None]
  - BLOOD POTASSIUM DECREASED [None]
  - BLOOD SODIUM DECREASED [None]
  - DRUG INTERACTION [None]
  - EOSINOPHILIA [None]
  - GASTROINTESTINAL EROSION [None]
  - INAPPROPRIATE SCHEDULE OF DRUG ADMINISTRATION [None]
  - MOUTH ULCERATION [None]
  - ODYNOPHAGIA [None]
  - PANCYTOPENIA [None]
  - PHARYNGEAL ULCERATION [None]
  - PSORIASIS [None]
  - RENAL FAILURE ACUTE [None]
